FAERS Safety Report 14174328 (Version 2)
Quarter: 2017Q4

REPORT INFORMATION
  Report Type: Report from Study
  Country: BR (occurrence: BR)
  Receive Date: 20171109
  Receipt Date: 20171227
  Transmission Date: 20180321
  Serious: Yes (Hospitalization)
  Sender: FDA-Public Use
  Company Number: BR-UCBSA-2017044603

PATIENT
  Age: 42 Year
  Sex: Male

DRUGS (2)
  1. LEVETIRACETAM. [Suspect]
     Active Substance: LEVETIRACETAM
     Indication: SEIZURE
     Dosage: DAILY DOSE:1000 MG
     Route: 048
     Dates: start: 2017, end: 2017
  2. LEVETIRACETAM. [Suspect]
     Active Substance: LEVETIRACETAM
     Dosage: UNK, 2X/DAY (BID) DAILY DOSE:2000 MG(KEPPRA 250MG AND KEPPRA 750MG IN THE MORNING AND AT NIGHT)
     Route: 048
     Dates: start: 2017

REACTIONS (4)
  - Diarrhoea [Recovered/Resolved]
  - Thrombocytopenia [Unknown]
  - Vomiting [Recovered/Resolved]
  - Feeling abnormal [Recovered/Resolved]

NARRATIVE: CASE EVENT DATE: 20171016
